FAERS Safety Report 9401026 (Version 1)
Quarter: 2013Q3

REPORT INFORMATION
  Report Type: Spontaneous
  Country: JP (occurrence: JP)
  Receive Date: 20130715
  Receipt Date: 20130715
  Transmission Date: 20140515
  Serious: Yes (Hospitalization)
  Sender: FDA-Public Use
  Company Number: JP-GLAXOSMITHKLINE-B0907567A

PATIENT
  Age: 29 Year
  Sex: Male

DRUGS (3)
  1. LAMICTAL [Suspect]
     Indication: EPILEPSY
     Dosage: 25MG ALTERNATE DAYS
     Route: 048
     Dates: start: 20121102
  2. DEPAKENE-R [Concomitant]
     Indication: EPILEPSY
     Dosage: 800MG TWICE PER DAY
     Route: 048
     Dates: start: 2007
  3. EXCEGRAN [Concomitant]
     Indication: EPILEPSY
     Dosage: 200MG TWICE PER DAY
     Route: 048
     Dates: start: 2007

REACTIONS (2)
  - Rash [Recovered/Resolved]
  - Skin disorder [Recovered/Resolved]
